FAERS Safety Report 23944480 (Version 1)
Quarter: 2024Q2

REPORT INFORMATION
  Report Type: Spontaneous
  Country: CN (occurrence: CN)
  Receive Date: 20240606
  Receipt Date: 20240606
  Transmission Date: 20240716
  Serious: Yes (Hospitalization, Other)
  Sender: FDA-Public Use
  Company Number: CN-862174955-ML2024-03347

PATIENT
  Age: 70 Year
  Sex: Male

DRUGS (6)
  1. BUPROPION [Suspect]
     Active Substance: BUPROPION
     Indication: Depression
     Dosage: BUPROPION AT 150 MG/DAY FOR TREATMENT
     Dates: end: 202302
  2. BUPROPION [Suspect]
     Active Substance: BUPROPION
     Dosage: ON DAY 4 OF THE HOSPITALIZATION
  3. PAROXETINE [Suspect]
     Active Substance: PAROXETINE
     Indication: Depression
     Dates: end: 202302
  4. PAROXETINE [Suspect]
     Active Substance: PAROXETINE
     Dosage: THE DOSE OF PAROXETINE WAS GRADUALLY INCREASED TO 40 MG PER DAY
  5. PAROXETINE [Suspect]
     Active Substance: PAROXETINE
     Dosage: AFTER THE HOSPITALISATION, THE DOSE OF PAROXETINE THERAPY?WAS REDUCED TO 20MG PER DAY.
  6. CLONAZEPAM [Concomitant]
     Active Substance: CLONAZEPAM
     Indication: Depression

REACTIONS (1)
  - Serotonin syndrome [Recovered/Resolved]
